FAERS Safety Report 17233418 (Version 4)
Quarter: 2020Q1

REPORT INFORMATION
  Report Type: Spontaneous
  Country: GB (occurrence: GB)
  Receive Date: 20200104
  Receipt Date: 20200204
  Transmission Date: 20200409
  Serious: Yes (Hospitalization, Other)
  Sender: FDA-Public Use
  Company Number: GB-AUROBINDO-AUR-APL-2019-107959

PATIENT
  Age: 47 Year
  Sex: Female
  Weight: 78 kg

DRUGS (3)
  1. LANSOPRAZOLE. [Concomitant]
     Active Substance: LANSOPRAZOLE
     Indication: PRODUCT USED FOR UNKNOWN INDICATION
     Dosage: 30 MILLIGRAM, ONCE A DAY
     Route: 065
  2. SERTRALINE [Suspect]
     Active Substance: SERTRALINE HYDROCHLORIDE
     Indication: DEPRESSION
     Dosage: 100 MILLIGRAM, ONCE A DAY
     Route: 065
     Dates: start: 201506
  3. SERTRALINE [Suspect]
     Active Substance: SERTRALINE HYDROCHLORIDE
     Dosage: 200 MILLIGRAM, ONCE A DAY
     Route: 065
     Dates: start: 201807, end: 20180926

REACTIONS (3)
  - Delirium [Unknown]
  - Hypersensitivity pneumonitis [Recovered/Resolved]
  - Tracheostomy [Unknown]

NARRATIVE: CASE EVENT DATE: 201807
